FAERS Safety Report 6745102-X (Version None)
Quarter: 2010Q2

REPORT INFORMATION
  Report Type: 
  Country: None (occurrence: None)
  Receive Date: 20100527
  Receipt Date: 20100517
  Transmission Date: 20101027
  Serious: Yes (Other)
  Sender: FDA-Public Use
  Company Number: US-WATSON-2010-06809

PATIENT
  Age: 17 Year
  Sex: Male
  Weight: 63 kg

DRUGS (3)
  1. CLONIDINE [Suspect]
     Indication: INSOMNIA
     Dosage: 0.1 MG, QHS
     Route: 048
  2. CONCERTA [Suspect]
     Indication: ATTENTION DEFICIT/HYPERACTIVITY DISORDER
     Dosage: 72 MG, DAILY
  3. CONCERTA [Suspect]
     Dosage: 90 MG, DAILY

REACTIONS (1)
  - PETIT MAL EPILEPSY [None]
